FAERS Safety Report 24234404 (Version 1)
Quarter: 2024Q3

REPORT INFORMATION
  Report Type: Spontaneous
  Country: US (occurrence: None)
  Receive Date: 20240820
  Receipt Date: 20240820
  Transmission Date: 20241017
  Serious: No
  Sender: Public
  Company Number: None

PATIENT
  Age: 23 Year
  Sex: Female
  Weight: 97 kg

DRUGS (2)
  1. VENOFER [Suspect]
     Active Substance: IRON SUCROSE
     Dates: start: 20240819
  2. VENOFER [Suspect]
     Active Substance: IRON SUCROSE

REACTIONS (6)
  - Chest discomfort [None]
  - Throat tightness [None]
  - Foetal hypokinesia [None]
  - Unevaluable event [None]
  - Maternal exposure timing unspecified [None]
  - Maternal drugs affecting foetus [None]

NARRATIVE: CASE EVENT DATE: 20240819
